FAERS Safety Report 8073781-6 (Version None)
Quarter: 2012Q1

REPORT INFORMATION
  Report Type: 
  Country: None (occurrence: None)
  Receive Date: 20120126
  Receipt Date: 20120113
  Transmission Date: 20120608
  Serious: Yes (Hospitalization)
  Sender: FDA-Public Use
  Company Number: IT-ROCHE-1030417

PATIENT
  Sex: Male
  Weight: 72 kg

DRUGS (5)
  1. RO 5024048 (HCV POLYMERASE INHIBITOR) [Suspect]
     Indication: HEPATITIS C
     Dosage: LAST DOSE PRIOR TO AE ONSET 14 DEC 2011
     Route: 048
  2. COPEGUS [Suspect]
     Indication: HEPATITIS C
     Dosage: LAST DOSE PRIOR TO AE ONSET 14 DEC 2011
     Route: 048
  3. PEGINTERFERON ALFA-2A [Suspect]
     Indication: HEPATITIS C
     Dosage: LAST DOSE PRIOR TO AE ONSET 08 DEC 2011
     Route: 058
  4. RO 5190591 (HCV PROTEASE INHIBITOR) [Suspect]
     Indication: HEPATITIS C
     Dosage: LAST DOSE PRIOR TO AE ONSET 14 DEC 2011
     Route: 048
     Dates: start: 20110630
  5. RITONAVIR [Suspect]
     Indication: HEPATITIS C
     Dosage: LAST DOSE PRIOR TO AE ONSET 14 DEC 2011
     Route: 048
     Dates: start: 20110630

REACTIONS (1)
  - BLOOD CREATINE PHOSPHOKINASE INCREASED [None]
